FAERS Safety Report 23569514 (Version 1)
Quarter: 2024Q1

REPORT INFORMATION
  Report Type: Other
  Country: CA (occurrence: CA)
  Receive Date: 20240227
  Receipt Date: 20240227
  Transmission Date: 20240410
  Serious: Yes (Hospitalization)
  Sender: FDA-Public Use
  Company Number: CA-ASTELLAS-2024US005558

PATIENT
  Sex: Male

DRUGS (24)
  1. TACROLIMUS [Suspect]
     Active Substance: TACROLIMUS
     Indication: Complications of transplanted heart
     Dosage: UNK UNK, UNKNOWN FREQ.
     Route: 065
  2. TACROLIMUS [Suspect]
     Active Substance: TACROLIMUS
     Indication: Angiopathy
  3. TACROLIMUS [Suspect]
     Active Substance: TACROLIMUS
     Indication: Complications of transplanted heart
     Dosage: UNK UNK, UNKNOWN FREQ.
     Route: 065
  4. TACROLIMUS [Suspect]
     Active Substance: TACROLIMUS
     Indication: Angiopathy
  5. AMLODIPINE [Suspect]
     Active Substance: AMLODIPINE BESYLATE
     Indication: Complications of transplanted heart
     Dosage: UNK UNK, UNKNOWN FREQ.
     Route: 065
  6. AMLODIPINE [Suspect]
     Active Substance: AMLODIPINE BESYLATE
     Indication: Angiopathy
  7. AMLODIPINE [Suspect]
     Active Substance: AMLODIPINE BESYLATE
     Indication: Complications of transplanted heart
     Dosage: 10 MG, ONCE DAILY (1 EVERY 1 DAYS)
     Route: 065
  8. AMLODIPINE [Suspect]
     Active Substance: AMLODIPINE BESYLATE
     Indication: Angiopathy
  9. ASPIRIN [Suspect]
     Active Substance: ASPIRIN
     Indication: Complications of transplanted heart
     Dosage: UNK UNK, UNKNOWN FREQ.
     Route: 065
  10. ASPIRIN [Suspect]
     Active Substance: ASPIRIN
     Indication: Angiopathy
     Dosage: UNK UNK, UNKNOWN FREQ.
     Route: 065
  11. CLOPIDOGREL [Suspect]
     Active Substance: CLOPIDOGREL BISULFATE
     Indication: Complications of transplanted heart
     Dosage: UNK UNK, UNKNOWN FREQ.
     Route: 065
  12. CLOPIDOGREL [Suspect]
     Active Substance: CLOPIDOGREL BISULFATE
     Indication: Angiopathy
  13. CLOPIDOGREL [Suspect]
     Active Substance: CLOPIDOGREL BISULFATE
     Indication: Complications of transplanted heart
     Dosage: UNK UNK, UNKNOWN FREQ.
     Route: 065
  14. CLOPIDOGREL [Suspect]
     Active Substance: CLOPIDOGREL BISULFATE
     Indication: Angiopathy
  15. HYDRALAZINE [Suspect]
     Active Substance: HYDRALAZINE HYDROCHLORIDE
     Indication: Complications of transplanted heart
     Dosage: 100 MG, THRICE DAILY (3 EVERY 1 DAYS)
     Route: 065
  16. HYDRALAZINE [Suspect]
     Active Substance: HYDRALAZINE HYDROCHLORIDE
     Indication: Angiopathy
     Dosage: UNK UNK, UNKNOWN FREQ.
     Route: 065
  17. HYDROMORPHONE [Suspect]
     Active Substance: HYDROMORPHONE
     Indication: Complications of transplanted heart
     Dosage: 9 MG, TWICE DAILY (2 EVERY 1 DAYS)
     Route: 065
  18. HYDROMORPHONE [Suspect]
     Active Substance: HYDROMORPHONE
     Indication: Angiopathy
     Route: 065
  19. METOPROLOL [Suspect]
     Active Substance: METOPROLOL
     Indication: Complications of transplanted heart
     Dosage: 100 MG, THRICE DAILY (3 EVERY 1 DAYS)
     Route: 065
  20. METOPROLOL [Suspect]
     Active Substance: METOPROLOL
     Indication: Angiopathy
     Dosage: UNK UNK, UNKNOWN FREQ.
     Route: 065
  21. PRAVASTATIN [Suspect]
     Active Substance: PRAVASTATIN
     Indication: Complications of transplanted heart
     Dosage: 60 MG, ONCE DAILY (1 EVERY 1 DAYS)
     Route: 065
  22. PRAVASTATIN [Suspect]
     Active Substance: PRAVASTATIN
     Indication: Angiopathy
     Dosage: UNK UNK, UNKNOWN FREQ.
     Route: 065
  23. SIROLIMUS [Suspect]
     Active Substance: SIROLIMUS
     Indication: Complications of transplanted heart
     Dosage: UNK UNK, UNKNOWN FREQ.
     Route: 065
  24. SIROLIMUS [Suspect]
     Active Substance: SIROLIMUS
     Indication: Angiopathy
     Dosage: UNK UNK, UNKNOWN FREQ.
     Route: 065

REACTIONS (2)
  - Drug ineffective for unapproved indication [Unknown]
  - Off label use [Unknown]
